FAERS Safety Report 13882996 (Version 8)
Quarter: 2018Q1

REPORT INFORMATION
  Report Type: Report from Study
  Country: US (occurrence: US)
  Receive Date: 20170818
  Receipt Date: 20180104
  Transmission Date: 20180508
  Serious: Yes (Hospitalization, Other)
  Sender: FDA-Public Use
  Company Number: US-ACTELION-A-NJ2017-158097

PATIENT
  Age: 51 Year
  Sex: Male
  Weight: 74.83 kg

DRUGS (5)
  1. ELIQUIS [Concomitant]
     Active Substance: APIXABAN
  2. VELETRI [Suspect]
     Active Substance: EPOPROSTENOL
     Indication: PULMONARY ARTERIAL HYPERTENSION
     Dosage: 9 NG/KG, PER MIN
     Route: 042
  3. ADEMPAS [Concomitant]
     Active Substance: RIOCIGUAT
  4. VELETRI [Suspect]
     Active Substance: EPOPROSTENOL
     Dosage: 11 NG/KG, PER MIN
     Route: 042
  5. IRON [Concomitant]
     Active Substance: IRON

REACTIONS (16)
  - Headache [Unknown]
  - Hyperhidrosis [Unknown]
  - Eye disorder [Unknown]
  - Dyspnoea [Unknown]
  - Lung neoplasm malignant [Unknown]
  - Swelling [Unknown]
  - Catheter site pruritus [Unknown]
  - Tinnitus [Unknown]
  - Constipation [Unknown]
  - Catheter site inflammation [Unknown]
  - Pain in extremity [Unknown]
  - Fluid retention [Unknown]
  - Catheter site related reaction [Unknown]
  - Pain in jaw [Not Recovered/Not Resolved]
  - Blood iron decreased [Unknown]
  - Vision blurred [Unknown]
